FAERS Safety Report 12487780 (Version 1)
Quarter: 2016Q2

REPORT INFORMATION
  Report Type: Spontaneous
  Country: US (occurrence: None)
  Receive Date: 20160621
  Receipt Date: 20160621
  Transmission Date: 20160815
  Serious: Yes (Hospitalization)
  Sender: FDA-Public Use
  Company Number: None

PATIENT
  Age: 80 Year
  Sex: Female

DRUGS (1)
  1. CAPECITABINE 500MG MYLAN [Suspect]
     Active Substance: CAPECITABINE
     Indication: COLON CANCER
     Dosage: 2TABS = 1000MG BID ORAL
     Route: 048
     Dates: start: 20160512, end: 20160603

REACTIONS (5)
  - Pain [None]
  - Dehydration [None]
  - Diarrhoea [None]
  - Stomatitis [None]
  - Nausea [None]

NARRATIVE: CASE EVENT DATE: 20160603
